FAERS Safety Report 7332131-0 (Version None)
Quarter: 2011Q1

REPORT INFORMATION
  Report Type: 
  Country: None (occurrence: None)
  Receive Date: 20110304
  Receipt Date: 20110221
  Transmission Date: 20110831
  Serious: Yes (Other)
  Sender: FDA-Public Use
  Company Number: PHHY2011FR11170

PATIENT
  Sex: Male
  Weight: 59 kg

DRUGS (10)
  1. NOZINAN [Suspect]
     Indication: CHILDHOOD PSYCHOSIS
     Dosage: 100 ORAL DROPS DAILY
     Route: 048
  2. DEPAKENE [Concomitant]
     Indication: CHILDHOOD PSYCHOSIS
     Dosage: 1000 MG, QD
  3. PARKINANE [Suspect]
     Indication: CHILDHOOD PSYCHOSIS
     Dosage: 2 MG, QD
     Route: 048
  4. CHLORAMINOPHENE [Concomitant]
     Dosage: UNK
     Dates: start: 20090101
  5. MEPRONIZINE [Concomitant]
     Indication: CHILDHOOD PSYCHOSIS
  6. LOXAPINE HCL [Concomitant]
     Indication: AGITATION
  7. STABLON [Suspect]
     Indication: CHILDHOOD PSYCHOSIS
     Dosage: 1 DF QD
  8. LEPONEX [Suspect]
     Indication: CHILDHOOD PSYCHOSIS
     Dosage: 100 MG, FIVE TIMES A DAY
     Route: 048
     Dates: end: 20081201
  9. TRIMEPRAZINE TARTRATE [Concomitant]
     Indication: CHILDHOOD PSYCHOSIS
  10. VALIUM [Concomitant]
     Indication: EPILEPSY

REACTIONS (3)
  - CHRONIC LYMPHOCYTIC LEUKAEMIA [None]
  - NEUTROPHIL COUNT DECREASED [None]
  - BLOOD COUNT ABNORMAL [None]
